FAERS Safety Report 9438179 (Version 1)
Quarter: 2013Q3

REPORT INFORMATION
  Report Type: Spontaneous
  Country: US (occurrence: US)
  Receive Date: 20130802
  Receipt Date: 20130802
  Transmission Date: 20140515
  Serious: Yes (Other)
  Sender: FDA-Public Use
  Company Number: US-BRISTOL-MYERS SQUIBB COMPANY-16873036

PATIENT
  Age: 79 Year
  Sex: Male
  Weight: 97.5 kg

DRUGS (5)
  1. COUMADIN [Suspect]
     Indication: CORONARY ARTERIAL STENT INSERTION
     Dosage: STARTED 10 YRS BEFORE.RESUMED 0N JAN2012.
  2. COUMADIN [Suspect]
     Indication: ATRIAL FIBRILLATION
     Dosage: STARTED 10 YRS BEFORE.RESUMED 0N JAN2012.
  3. WARFARIN SODIUM [Suspect]
     Indication: ATRIAL FIBRILLATION
  4. WARFARIN SODIUM [Suspect]
     Indication: CORONARY ARTERIAL STENT INSERTION
  5. CLOPIDOGREL BISULFATE [Suspect]
     Indication: CORONARY ARTERIAL STENT INSERTION
     Dosage: SWITCHED TO GENERIC CLOPIDOGREL ON 02JUL2012
     Dates: start: 20120702

REACTIONS (3)
  - Epistaxis [Recovered/Resolved]
  - Headache [Recovered/Resolved]
  - Drug tolerance decreased [Unknown]
